FAERS Safety Report 20927908 (Version 1)
Quarter: 2022Q2

REPORT INFORMATION
  Report Type: Other
  Country: SA (occurrence: SA)
  Receive Date: 20220607
  Receipt Date: 20220607
  Transmission Date: 20220720
  Serious: Yes (Death, Life-Threatening, Other)
  Sender: FDA-Public Use
  Company Number: SA-Teikoku Pharma USA-TPU2022-00504

PATIENT
  Age: 25 Year
  Sex: Female

DRUGS (1)
  1. LIDOCAINE [Suspect]
     Active Substance: LIDOCAINE
     Route: 065

REACTIONS (4)
  - Drug level increased [Fatal]
  - Intentional product use issue [Fatal]
  - Overdose [Fatal]
  - Maternal exposure during pregnancy [Not Recovered/Not Resolved]
